FAERS Safety Report 5028613-7 (Version None)
Quarter: 2006Q2

REPORT INFORMATION
  Report Type: 
  Country: None (occurrence: None)
  Receive Date: 20060501
  Receipt Date: 20060228
  Transmission Date: 20061013
  Serious: No
  Sender: FDA-Public Use
  Company Number: 200611915US

PATIENT
  Age: 53 Year
  Sex: Female

DRUGS (2)
  1. KETEK [Suspect]
     Indication: SINUSITIS
     Dosage: 800 MG QD PO
     Route: 048
     Dates: start: 20060207, end: 20060208
  2. LEVOTHYROXINE SODIUM (LEVOXYL) [Concomitant]

REACTIONS (3)
  - DYSPNOEA [None]
  - PHOTOPHOBIA [None]
  - RENAL PAIN [None]
